FAERS Safety Report 23561552 (Version 1)
Quarter: 2024Q1

REPORT INFORMATION
  Report Type: Spontaneous
  Country: US (occurrence: US)
  Receive Date: 20240225
  Receipt Date: 20240225
  Transmission Date: 20240410
  Serious: Yes (Other)
  Sender: FDA-Public Use
  Company Number: US-AUROBINDO-AUR-APL-2024-008019

PATIENT
  Age: 30 Year
  Sex: Female

DRUGS (4)
  1. FERROUS SULFATE [Suspect]
     Active Substance: FERROUS SULFATE
     Indication: Product used for unknown indication
     Dosage: 325 MILLIGRAM, 3 TIMES A DAY
     Route: 065
  2. SODIUM FERRIC GLUCONATE COMPLEX [Suspect]
     Active Substance: SODIUM FERRIC GLUCONATE COMPLEX
     Indication: Anaemia
     Dosage: UNK (12.5 MG/MINUTE), IV PUSH OVER A PERIOD OF 20 MINUTES
     Route: 042
  3. DOCUSATE SODIUM [Suspect]
     Active Substance: DOCUSATE SODIUM
     Indication: Constipation
     Dosage: 100 MILLIGRAM, ONCE A DAY
     Route: 048
  4. TERBUTALINE [Suspect]
     Active Substance: TERBUTALINE
     Indication: Product used for unknown indication
     Dosage: 0.25 MILLIGRAM
     Route: 042

REACTIONS (2)
  - Drug intolerance [Unknown]
  - Exposure during pregnancy [Unknown]
